FAERS Safety Report 19352342 (Version 3)
Quarter: 2021Q3

REPORT INFORMATION
  Report Type: Other
  Country: US (occurrence: US)
  Receive Date: 20210531
  Receipt Date: 20210823
  Transmission Date: 20211014
  Serious: Yes (Hospitalization, Other)
  Sender: FDA-Public Use
  Company Number: US-NEUROCRINE BIOSCIENCES INC.-2021NBI02662

PATIENT

DRUGS (2)
  1. INGREZZA [Suspect]
     Active Substance: VALBENAZINE
     Dosage: 40 UNK
     Route: 048
     Dates: start: 20200715, end: 20200722
  2. INGREZZA [Suspect]
     Active Substance: VALBENAZINE
     Indication: TARDIVE DYSKINESIA
     Dosage: 80 MILLIGRAM, QD
     Route: 048
     Dates: start: 20200722

REACTIONS (4)
  - Infection [Recovered/Resolved]
  - Cholelithiasis obstructive [Recovered/Resolved]
  - Catatonia [Unknown]
  - Organ failure [Recovered/Resolved]

NARRATIVE: CASE EVENT DATE: 202105
